FAERS Safety Report 8159320-X (Version None)
Quarter: 2012Q1

REPORT INFORMATION
  Report Type: 
  Country: None (occurrence: None)
  Receive Date: 20120217
  Receipt Date: 20120208
  Transmission Date: 20120608
  Serious: Yes (Death, Hospitalization)
  Sender: FDA-Public Use
  Company Number: 1000028386

PATIENT
  Age: 76 Year
  Sex: Male
  Weight: 84 kg

DRUGS (17)
  1. RAMIPRIL [Concomitant]
  2. TRIMIPRAMINE MALEATE [Concomitant]
  3. FOSTER (PIROXICAM) [Concomitant]
  4. CITALOPRAM HYDROBROMIDE [Suspect]
  5. SPIRIVA [Concomitant]
  6. XIMOVAN (ZOPICLONE) [Concomitant]
  7. NULYTELY [Concomitant]
  8. GEMCITABINE HYDROCHLORIDE [Suspect]
     Indication: NON-SMALL CELL LUNG CANCER
     Dosage: 2575 MG, 1 IN 21 D, INTRAVENOUS
     Route: 042
     Dates: start: 20101103
  9. MCP (METOCLOPRAMIDE HYDROCHLORIDE) [Concomitant]
  10. ARTELAC (HYPROMELLOSE) [Concomitant]
  11. CISPLATIN [Suspect]
     Indication: NON-SMALL CELL LUNG CANCER
     Dosage: 154 MG, 1 IN 21 D, INTRAVENOUS
     Route: 042
     Dates: start: 20101103
  12. AMLODIPINE [Concomitant]
  13. AMITRIPTYLIN (AMITRIPTYLINE HYDROCHLORIDE) [Concomitant]
  14. RAMIPRIL PLUS (HYDROCHLOROTHIAZIDE, RAMIPRIL) [Concomitant]
  15. SULTANOL (SALBUTAMOL SULFATE) [Concomitant]
  16. LORAZEPAM [Concomitant]
  17. LEXOTANIL (BROMAZEPAM) [Suspect]
     Dates: start: 20101207, end: 20110116

REACTIONS (10)
  - DISORIENTATION [None]
  - HEADACHE [None]
  - DEPRESSED LEVEL OF CONSCIOUSNESS [None]
  - RED BLOOD CELL COUNT DECREASED [None]
  - TREATMENT NONCOMPLIANCE [None]
  - CONDITION AGGRAVATED [None]
  - HYPONATRAEMIA [None]
  - BLOOD PRESSURE SYSTOLIC INCREASED [None]
  - VISION BLURRED [None]
  - PSYCHOMOTOR RETARDATION [None]
